FAERS Safety Report 18930681 (Version 1)
Quarter: 2021Q1

REPORT INFORMATION
  Report Type: Spontaneous
  Country: US (occurrence: US)
  Receive Date: 20210224
  Receipt Date: 20210224
  Transmission Date: 20210420
  Serious: No
  Sender: FDA-Public Use
  Company Number: US-ASTRAZENECA-2021A071281

PATIENT
  Sex: Male
  Weight: 59 kg

DRUGS (2)
  1. SYMBICORT [Suspect]
     Active Substance: BUDESONIDE\FORMOTEROL FUMARATE DIHYDRATE
     Indication: EMPHYSEMA
     Dosage: 160UG/INHAL TWO TIMES A DAY
     Route: 055
     Dates: start: 2019
  2. SYMBICORT [Suspect]
     Active Substance: BUDESONIDE\FORMOTEROL FUMARATE DIHYDRATE
     Indication: CHRONIC OBSTRUCTIVE PULMONARY DISEASE
     Dosage: 160UG/INHAL TWO TIMES A DAY
     Route: 055
     Dates: start: 2019

REACTIONS (6)
  - Dyspnoea [Unknown]
  - Device issue [Unknown]
  - Wrong technique in device usage process [Unknown]
  - Therapeutic product effect decreased [Unknown]
  - Intentional device misuse [Unknown]
  - Product dose omission issue [Unknown]
